FAERS Safety Report 8270637-0 (Version None)
Quarter: 2012Q2

REPORT INFORMATION
  Report Type: 
  Country: None (occurrence: None)
  Receive Date: 20120410
  Receipt Date: 20120410
  Transmission Date: 20120825
  Serious: Yes (Hospitalization, Other)
  Sender: FDA-Public Use
  Company Number: US-TEVA-192315USA

PATIENT
  Age: 28 Year
  Sex: Female

DRUGS (1)
  1. ENPRESSE-21 [Suspect]
     Indication: CONTRACEPTION
     Route: 048

REACTIONS (2)
  - DYSURIA [None]
  - TOXIC EPIDERMAL NECROLYSIS [None]
